FAERS Safety Report 7381289-6 (Version None)
Quarter: 2011Q1

REPORT INFORMATION
  Report Type: 
  Country: None (occurrence: None)
  Receive Date: 20110321
  Receipt Date: 20110218
  Transmission Date: 20110831
  Serious: Yes (Hospitalization)
  Sender: FDA-Public Use
  Company Number: UTC-005341

PATIENT
  Age: 41 Year
  Sex: Female
  Weight: 136.4 kg

DRUGS (2)
  1. DIURETICS (DIURETICS) [Concomitant]
  2. REMODULIN [Suspect]
     Dosage: 106.56 UG/KG (0.074 UG/KG,1 IN 1 MIN),INTRAVEOUS
     Route: 042
     Dates: start: 20051130

REACTIONS (3)
  - INFLUENZA LIKE ILLNESS [None]
  - DYSPNOEA [None]
  - DEHYDRATION [None]
